FAERS Safety Report 25845489 (Version 2)
Quarter: 2025Q4

REPORT INFORMATION
  Report Type: Spontaneous
  Country: US (occurrence: US)
  Receive Date: 20250925
  Receipt Date: 20251030
  Transmission Date: 20260118
  Serious: No
  Sender: TOLMAR
  Company Number: US-Tolmar-TLM-2025-06728

PATIENT

DRUGS (3)
  1. ELIGARD [Suspect]
     Active Substance: LEUPROLIDE ACETATE
     Indication: Prostate cancer
     Dosage: GTIN: 00362935227106?SN: 5798911771571?EXPIRATION DATES: UNK; DEC-2026; DEC-2026?DOSE NOT ADMINISTER
     Route: 058
  2. ELIGARD [Suspect]
     Active Substance: LEUPROLIDE ACETATE
     Dosage: REPLACEMENT DOSE GIVEN
  3. DEVICE [Suspect]
     Active Substance: DEVICE
     Indication: Prostate cancer
     Dosage: GTIN: 00362935227106?SN: 5798911771571?EXPIRATION DATES: UNK; DEC-2026; DEC-2026

REACTIONS (3)
  - Intercepted product administration error [Unknown]
  - Needle issue [Unknown]
  - Syringe issue [Unknown]
